FAERS Safety Report 6084208-8 (Version None)
Quarter: 2009Q1

REPORT INFORMATION
  Report Type: 
  Country: None (occurrence: None)
  Receive Date: 20090217
  Receipt Date: 20090209
  Transmission Date: 20090719
  Serious: Yes (Other)
  Sender: FDA-Public Use
  Company Number: 2008SP023969

PATIENT
  Age: 60 Year
  Sex: Female
  Weight: 89.8122 kg

DRUGS (11)
  1. NASONEX [Suspect]
     Indication: RHINITIS ALLERGIC
     Dosage: 2 DF; QD
     Route: 045
     Dates: start: 20060901, end: 20080801
  2. NASONEX [Suspect]
     Indication: RHINITIS ALLERGIC
     Dosage: 2 DF; QD
     Route: 045
     Dates: start: 20080801, end: 20081101
  3. TIMOPTIC [Suspect]
     Indication: INTRAOCULAR PRESSURE INCREASED
  4. ZESTRIL [Concomitant]
  5. LIPITOR [Concomitant]
  6. LOSEC [Concomitant]
  7. CELEXA [Concomitant]
  8. ASPIRIN [Concomitant]
  9. REACTINE [Concomitant]
  10. ATASOL FORTE [Concomitant]
  11. VITAMINS [Concomitant]

REACTIONS (5)
  - COUGH [None]
  - EYE IRRITATION [None]
  - GLAUCOMA [None]
  - MYODESOPSIA [None]
  - OCULAR HYPERAEMIA [None]
